FAERS Safety Report 17403525 (Version 1)
Quarter: 2020Q1

REPORT INFORMATION
  Report Type: Spontaneous
  Country: US (occurrence: US)
  Receive Date: 20200211
  Receipt Date: 20200211
  Transmission Date: 20200409
  Serious: Yes (Other)
  Sender: FDA-Public Use
  Company Number: US-ASTRAZENECA-2020SE20684

PATIENT
  Age: 27 Year
  Sex: Male
  Weight: 93.9 kg

DRUGS (2)
  1. NEXIUM 24HR [Suspect]
     Active Substance: ESOMEPRAZOLE MAGNESIUM
     Indication: DYSPEPSIA
     Dosage: ONCE/SINGLE ADMINISTRATION
     Route: 048
     Dates: start: 202001, end: 2020
  2. NEXIUM 24HR [Suspect]
     Active Substance: ESOMEPRAZOLE MAGNESIUM
     Indication: DYSPEPSIA
     Dosage: 1.0DF ONCE/SINGLE ADMINISTRATION
     Route: 048
     Dates: start: 2019, end: 2019

REACTIONS (4)
  - Chest pain [Unknown]
  - Heart rate irregular [Unknown]
  - Vomiting [Unknown]
  - Feeling abnormal [Unknown]

NARRATIVE: CASE EVENT DATE: 2020
